FAERS Safety Report 5065853-5 (Version None)
Quarter: 2006Q3

REPORT INFORMATION
  Report Type: 
  Country: None (occurrence: None)
  Receive Date: 20060728
  Receipt Date: 20060728
  Transmission Date: 20061208
  Serious: Yes (Other)
  Sender: FDA-Public Use
  Company Number: None

PATIENT
  Age: 41 Year
  Sex: Female
  Weight: 142 kg

DRUGS (4)
  1. DILAUDID [Suspect]
     Indication: PAIN
     Dosage: 1-2MG  EVERY 3-4HRS  IV
     Route: 042
     Dates: start: 20060714
  2. LOVENOX [Concomitant]
  3. COUMADIN [Concomitant]
  4. APAP TAB [Concomitant]

REACTIONS (2)
  - HYPERSENSITIVITY [None]
  - PRURITUS GENERALISED [None]
